FAERS Safety Report 16258723 (Version 2)
Quarter: 2019Q2

REPORT INFORMATION
  Report Type: Spontaneous
  Country: DZ (occurrence: DZ)
  Receive Date: 20190430
  Receipt Date: 20190515
  Transmission Date: 20190711
  Serious: Yes (Other)
  Sender: FDA-Public Use
  Company Number: DZ-BAXTER-2019BAX008257

PATIENT
  Age: 45 Year

DRUGS (1)
  1. SEVOFLURANE USP [Suspect]
     Active Substance: SEVOFLURANE
     Indication: OCCUPATIONAL EXPOSURE TO PRODUCT
     Route: 055

REACTIONS (10)
  - Hot flush [Recovered/Resolved]
  - Nausea [Recovered/Resolved]
  - Stress [Recovered/Resolved]
  - Delirium [Recovered/Resolved]
  - Balance disorder [Recovered/Resolved]
  - Occupational exposure to product [Recovered/Resolved]
  - Amnesia [Recovered/Resolved]
  - Vomiting [Recovered/Resolved]
  - Device issue [Unknown]
  - Insomnia [Recovered/Resolved]
